FAERS Safety Report 7225464-X (Version None)
Quarter: 2011Q1

REPORT INFORMATION
  Report Type: 
  Country: None (occurrence: None)
  Receive Date: 20110113
  Receipt Date: 20110107
  Transmission Date: 20110831
  Serious: No
  Sender: FDA-Public Use
  Company Number: US-PFIZER INC-2011005740

PATIENT
  Sex: Female

DRUGS (2)
  1. SYNTHROID [Concomitant]
     Dosage: 100 UG, UNK
     Route: 048
  2. PREMARIN [Suspect]
     Dosage: 0.9 MG, UNK
     Route: 048

REACTIONS (1)
  - DRUG INEFFECTIVE [None]
